FAERS Safety Report 16093029 (Version 1)
Quarter: 2019Q1

REPORT INFORMATION
  Report Type: Spontaneous
  Country: IT (occurrence: IT)
  Receive Date: 20190320
  Receipt Date: 20190320
  Transmission Date: 20190418
  Serious: Yes (Other)
  Sender: FDA-Public Use
  Company Number: IT-ACCORD-114049

PATIENT
  Age: 8 Year
  Sex: Male
  Weight: 28 kg

DRUGS (1)
  1. ONDANSETRON ACCORD HEALTHCARE [Suspect]
     Active Substance: ONDANSETRON
     Indication: PROPHYLAXIS OF NAUSEA AND VOMITING
     Dosage: STRENGTH: 2 MG / ML SOLUTION FOR INJECTION OR INF
     Route: 042
     Dates: start: 20180309, end: 20181119

REACTIONS (5)
  - Cough [Recovered/Resolved]
  - Pruritus [Recovered/Resolved]
  - Choking sensation [Recovered/Resolved]
  - Hyperaemia [Recovered/Resolved]
  - Infusion related reaction [None]

NARRATIVE: CASE EVENT DATE: 20181119
